FAERS Safety Report 7628744-9 (Version None)
Quarter: 2011Q3

REPORT INFORMATION
  Report Type: 
  Country: None (occurrence: None)
  Receive Date: 20110721
  Receipt Date: 20110721
  Transmission Date: 20111222
  Serious: Yes (Disabling, Other)
  Sender: FDA-Public Use
  Company Number: None

PATIENT
  Sex: Female
  Weight: 24.4942 kg

DRUGS (2)
  1. LYRICA [Suspect]
  2. BOTOX [Suspect]

REACTIONS (4)
  - MUSCLE SPASMS [None]
  - BURNING SENSATION [None]
  - TREATMENT FAILURE [None]
  - HYPERSENSITIVITY [None]
